FAERS Safety Report 11803514 (Version 1)
Quarter: 2015Q4

REPORT INFORMATION
  Report Type: Spontaneous
  Country: CA (occurrence: CA)
  Receive Date: 20151204
  Receipt Date: 20151204
  Transmission Date: 20160305
  Serious: Yes (Hospitalization, Other)
  Sender: FDA-Public Use
  Company Number: CA-TEVA-613910ACC

PATIENT
  Age: 71 Year
  Sex: Male
  Weight: 119.4 kg

DRUGS (13)
  1. HYDROMORPH CONTIN [Concomitant]
     Active Substance: HYDROMORPHONE
  2. COUMADIN [Concomitant]
     Active Substance: WARFARIN SODIUM
  3. LANTUS [Concomitant]
     Active Substance: INSULIN GLARGINE
     Route: 058
  4. LASIX [Concomitant]
     Active Substance: FUROSEMIDE
  5. GABAPENTIN. [Suspect]
     Active Substance: GABAPENTIN
     Indication: NEUROPATHY PERIPHERAL
     Route: 048
  6. GABAPENTIN. [Suspect]
     Active Substance: GABAPENTIN
     Route: 048
  7. METFORMIN [Concomitant]
     Active Substance: METFORMIN HYDROCHLORIDE
  8. NORVASC [Concomitant]
     Active Substance: AMLODIPINE BESYLATE
  9. HUMALOG [Concomitant]
     Active Substance: INSULIN LISPRO
  10. COVERSYL [Concomitant]
     Active Substance: PERINDOPRIL
  11. DIGOXIN. [Concomitant]
     Active Substance: DIGOXIN
  12. SPIRIVA [Concomitant]
     Active Substance: TIOTROPIUM BROMIDE MONOHYDRATE
  13. PANTOLOC [Concomitant]
     Active Substance: PANTOPRAZOLE SODIUM

REACTIONS (3)
  - Rash [Recovered/Resolved]
  - Tremor [Recovered/Resolved]
  - Confusional state [Recovered/Resolved]
